FAERS Safety Report 7805955-0 (Version None)
Quarter: 2011Q4

REPORT INFORMATION
  Report Type: 
  Country: None (occurrence: None)
  Receive Date: 20111007
  Receipt Date: 20111007
  Transmission Date: 20120403
  Serious: Yes (Other)
  Sender: FDA-Public Use
  Company Number: None

PATIENT
  Age: 88 Year
  Sex: Female

DRUGS (1)
  1. FORTEO [Suspect]
     Indication: OSTEOPOROSIS
     Dosage: 20MG DAILY SQ
     Route: 058
     Dates: start: 20110718

REACTIONS (3)
  - PARANOIA [None]
  - MENTAL IMPAIRMENT [None]
  - ANXIETY [None]
